FAERS Safety Report 22069946 (Version 2)
Quarter: 2023Q1

REPORT INFORMATION
  Report Type: Report from Study
  Country: GB (occurrence: GB)
  Receive Date: 20230307
  Receipt Date: 20230331
  Transmission Date: 20230418
  Serious: Yes (Hospitalization)
  Sender: FDA-Public Use
  Company Number: GB-PFIZER INC-PV202300040685

PATIENT
  Age: 79 Year
  Sex: Male
  Weight: 96.8 kg

DRUGS (6)
  1. TALAZOPARIB [Suspect]
     Active Substance: TALAZOPARIB
     Indication: Hormone-dependent prostate cancer
     Dosage: UNK UNK, DAILY
     Route: 048
     Dates: start: 20230126, end: 20230222
  2. ENZALUTAMIDE [Suspect]
     Active Substance: ENZALUTAMIDE
     Indication: Hormone-dependent prostate cancer
     Dosage: 160 MG, DAILY
     Route: 048
     Dates: start: 20230126, end: 20230222
  3. EDOXABAN [Concomitant]
     Active Substance: EDOXABAN
     Indication: Cardiac failure
     Dosage: 60 MG, DAILY
     Route: 048
     Dates: start: 20161122
  4. FUROSEMIDE [Concomitant]
     Active Substance: FUROSEMIDE
     Indication: Cardiac failure
     Dosage: 80 MG, 3X/DAY
     Route: 048
     Dates: start: 20191122
  5. ALENDRONIC ACID [Concomitant]
     Active Substance: ALENDRONIC ACID
     Indication: Prophylaxis
     Dosage: 70 MG, WEEKLY
     Route: 048
     Dates: start: 20221103
  6. ZOLADEX [Concomitant]
     Active Substance: GOSERELIN ACETATE
     Indication: Prostate cancer
     Dosage: 10.8 MG, EVERY 3 MONTHS
     Route: 058
     Dates: start: 20221108

REACTIONS (1)
  - Myocardial infarction [Not Recovered/Not Resolved]

NARRATIVE: CASE EVENT DATE: 20230228
